FAERS Safety Report 24144991 (Version 2)
Quarter: 2024Q3

REPORT INFORMATION
  Report Type: Spontaneous
  Country: JP (occurrence: JP)
  Receive Date: 20240729
  Receipt Date: 20240925
  Transmission Date: 20241016
  Serious: Yes (Life-Threatening, Hospitalization, Other)
  Sender: MERCK
  Company Number: JP-MSD-M2024-26902

PATIENT
  Age: 54 Year
  Sex: Male

DRUGS (3)
  1. BELSOMRA [Suspect]
     Active Substance: SUVOREXANT
     Indication: Insomnia
     Dosage: 15 MILLIGRAM, QD
     Route: 048
     Dates: start: 20230327
  2. BELSOMRA [Suspect]
     Active Substance: SUVOREXANT
     Dosage: 1500 MILLIGRAM
     Route: 048
     Dates: start: 20240709, end: 20240709
  3. MIRTAZAPINE [Concomitant]
     Active Substance: MIRTAZAPINE
     Indication: Depression
     Dosage: 15 MILLIGRAM, QD
     Route: 048
     Dates: start: 20230327

REACTIONS (5)
  - Suicide attempt [Unknown]
  - Choking [Unknown]
  - Depressed level of consciousness [Recovered/Resolved]
  - Prescribed underdose [Unknown]
  - Intentional overdose [Unknown]

NARRATIVE: CASE EVENT DATE: 20230327
